FAERS Safety Report 25381781 (Version 1)
Quarter: 2025Q2

REPORT INFORMATION
  Report Type: Spontaneous
  Country: FR (occurrence: FR)
  Receive Date: 20250531
  Receipt Date: 20250531
  Transmission Date: 20250716
  Serious: Yes (Hospitalization, Other)
  Sender: AUROBINDO
  Company Number: FR-AFSSAPS-DJ2025000819

PATIENT
  Age: 65 Year
  Sex: Male
  Weight: 57 kg

DRUGS (3)
  1. CIPROFLOXACIN [Suspect]
     Active Substance: CIPROFLOXACIN
     Indication: Intervertebral discitis
     Dosage: 1500 MILLIGRAM, ONCE A DAY (750 MG 2/J)
     Route: 048
     Dates: start: 20250408, end: 20250501
  2. ZOPICLONE [Suspect]
     Active Substance: ZOPICLONE
     Indication: Sleep disorder
     Dosage: 7.5 MILLIGRAM, ONCE A DAY
     Route: 048
     Dates: start: 20250427, end: 20250502
  3. BACTRIM [Suspect]
     Active Substance: SULFAMETHOXAZOLE\TRIMETHOPRIM
     Indication: Intervertebral discitis
     Dosage: 2 DOSAGE FORM, ONCE A DAY (1 CP 2/DAY
     Route: 048
     Dates: start: 20250422, end: 20250429

REACTIONS (1)
  - Acute febrile neutrophilic dermatosis [Recovering/Resolving]

NARRATIVE: CASE EVENT DATE: 20250429
